FAERS Safety Report 15971244 (Version 1)
Quarter: 2019Q1

REPORT INFORMATION
  Report Type: Spontaneous
  Country: FR (occurrence: FR)
  Receive Date: 20190215
  Receipt Date: 20190215
  Transmission Date: 20190418
  Serious: Yes (Other)
  Sender: FDA-Public Use
  Company Number: PHHY2019FR033308

PATIENT
  Age: 81 Year
  Sex: Female

DRUGS (1)
  1. ERELZI [Suspect]
     Active Substance: ETANERCEPT-SZZS
     Indication: RHEUMATOID ARTHRITIS
     Dosage: UNK
     Route: 058

REACTIONS (7)
  - Gait disturbance [Recovered/Resolved]
  - Hypotension [Recovered/Resolved]
  - Headache [Recovered/Resolved]
  - Drug ineffective [Recovered/Resolved]
  - Weight decreased [Recovered/Resolved]
  - Malaise [Recovered/Resolved]
  - Gastrointestinal disorder [Recovered/Resolved]

NARRATIVE: CASE EVENT DATE: 201807
